FAERS Safety Report 7602920-3 (Version None)
Quarter: 2011Q3

REPORT INFORMATION
  Report Type: 
  Country: None (occurrence: None)
  Receive Date: 20110712
  Receipt Date: 20110628
  Transmission Date: 20111222
  Serious: Yes (Other)
  Sender: FDA-Public Use
  Company Number: US-CELGENEUS-163-21880-11063895

PATIENT
  Sex: Male

DRUGS (2)
  1. REVLIMID [Suspect]
     Indication: MULTIPLE MYELOMA
     Dosage: 25 MILLIGRAM
     Route: 048
     Dates: start: 20110401, end: 20110101
  2. REVLIMID [Suspect]
     Dosage: 25 MILLIGRAM
     Route: 048
     Dates: start: 20110621

REACTIONS (8)
  - BLOOD URINE PRESENT [None]
  - IRRITABILITY [None]
  - FATIGUE [None]
  - DEMENTIA [None]
  - COMPRESSION FRACTURE [None]
  - TESTICULAR SWELLING [None]
  - ARTHRALGIA [None]
  - BACK PAIN [None]
